FAERS Safety Report 5793279-5 (Version None)
Quarter: 2008Q2

REPORT INFORMATION
  Report Type: 
  Country: None (occurrence: None)
  Receive Date: 20080626
  Receipt Date: 20080626
  Transmission Date: 20081010
  Serious: No
  Sender: FDA-Public Use
  Company Number: None

PATIENT
  Age: 62 Year
  Sex: Female
  Weight: 92.5 kg

DRUGS (1)
  1. TAXOTERE [Suspect]
     Indication: BREAST CANCER STAGE I
     Dosage: 140 MG X1 IV
     Route: 042
     Dates: start: 20071228

REACTIONS (3)
  - ERYTHEMA [None]
  - INFUSION RELATED REACTION [None]
  - SENSATION OF FOREIGN BODY [None]
